FAERS Safety Report 21400804 (Version 3)
Quarter: 2022Q4

REPORT INFORMATION
  Report Type: Report from Study
  Country: GB (occurrence: GB)
  Receive Date: 20221003
  Receipt Date: 20221222
  Transmission Date: 20230113
  Serious: Yes (Other)
  Sender: FDA-Public Use
  Company Number: GB-JNJFOC-20220247187

PATIENT

DRUGS (7)
  1. PREDNISOLONE [Suspect]
     Active Substance: PREDNISOLONE
     Indication: Product used for unknown indication
     Dosage: 10 MG
     Route: 048
  2. PREDNISOLONE [Suspect]
     Active Substance: PREDNISOLONE
     Dosage: 5 MG
     Route: 048
  3. ERLEADA [Suspect]
     Active Substance: APALUTAMIDE
     Indication: Prostate cancer metastatic
     Dosage: 240 MG, QD
     Route: 048
     Dates: start: 20220107
  4. ERLEADA [Suspect]
     Active Substance: APALUTAMIDE
     Dosage: 120 MG, QD
     Route: 048
  5. ERLEADA [Suspect]
     Active Substance: APALUTAMIDE
     Dosage: 180 MG, QD
     Route: 048
  6. ERLEADA [Suspect]
     Active Substance: APALUTAMIDE
     Dosage: 120 MG, QD
     Route: 048
     Dates: start: 20221205
  7. ACETAMINOPHEN [Concomitant]
     Active Substance: ACETAMINOPHEN
     Indication: Pain
     Dosage: UNK, PRN (1 AS REQUIRED)
     Route: 048

REACTIONS (9)
  - Blood potassium increased [Recovered/Resolved]
  - Back pain [Recovering/Resolving]
  - Hot flush [Recovering/Resolving]
  - Tooth abscess [Recovered/Resolved]
  - Diabetes mellitus inadequate control [Recovering/Resolving]
  - Prostatic specific antigen increased [Not Recovered/Not Resolved]
  - Pain in extremity [Not Recovered/Not Resolved]
  - Groin pain [Not Recovered/Not Resolved]
  - Product dose omission issue [Unknown]

NARRATIVE: CASE EVENT DATE: 20220201
